FAERS Safety Report 14467461 (Version 1)
Quarter: 2018Q1

REPORT INFORMATION
  Report Type: Report from Study
  Country: US (occurrence: US)
  Receive Date: 20180131
  Receipt Date: 20180131
  Transmission Date: 20180509
  Serious: Yes (Hospitalization, Other)
  Sender: FDA-Public Use
  Company Number: US-JNJFOC-20171120220

PATIENT
  Age: 76 Year
  Sex: Male

DRUGS (10)
  1. TRIAMCINOLONE ACETONIDE. [Concomitant]
     Active Substance: TRIAMCINOLONE ACETONIDE
     Indication: MOUTH ULCERATION
     Dosage: 2-3 TIMES,PRN
     Route: 048
     Dates: start: 20180116
  2. TRIAMCINOLONE ACETONIDE. [Concomitant]
     Active Substance: TRIAMCINOLONE ACETONIDE
     Indication: SKIN FISSURES
     Dosage: 2-3 TIMES,PRN
     Route: 061
     Dates: start: 20180116
  3. IMBRUVICA [Suspect]
     Active Substance: IBRUTINIB
     Indication: WALDENSTROM^S MACROGLOBULINAEMIA
     Route: 048
     Dates: start: 201704, end: 20170911
  4. NITROGLYCERIN. [Concomitant]
     Active Substance: NITROGLYCERIN
     Indication: CHEST PAIN
     Route: 060
     Dates: start: 20180116
  5. IMBRUVICA [Suspect]
     Active Substance: IBRUTINIB
     Indication: WALDENSTROM^S MACROGLOBULINAEMIA
     Route: 048
     Dates: start: 20170912, end: 20171205
  6. NITROGLYCERIN. [Concomitant]
     Active Substance: NITROGLYCERIN
     Indication: DYSPNOEA
     Route: 060
     Dates: start: 20180116
  7. ALBUTEROL HFA [Concomitant]
     Active Substance: ALBUTEROL SULFATE
     Dosage: EVERY 4 TO 6 HRS AS NEEDED??AEROSOL (SPRAY AND INHALATION)
     Dates: start: 20180116
  8. MUPIROCIN. [Concomitant]
     Active Substance: MUPIROCIN
     Indication: INFECTION
     Route: 061
     Dates: start: 20180116
  9. IMBRUVICA [Suspect]
     Active Substance: IBRUTINIB
     Indication: WALDENSTROM^S MACROGLOBULINAEMIA
     Route: 048
     Dates: start: 20150925, end: 201509
  10. IMBRUVICA [Suspect]
     Active Substance: IBRUTINIB
     Indication: WALDENSTROM^S MACROGLOBULINAEMIA
     Route: 048
     Dates: start: 201509, end: 20170314

REACTIONS (9)
  - Fall [Unknown]
  - Thrombocytopenia [Unknown]
  - Epistaxis [Unknown]
  - Fatigue [Unknown]
  - Neutropenia [Unknown]
  - Contusion [Recovering/Resolving]
  - Hepatitis B reactivation [Unknown]
  - Facial bones fracture [Unknown]
  - Blood immunoglobulin M increased [Unknown]

NARRATIVE: CASE EVENT DATE: 201703
